FAERS Safety Report 16996875 (Version 4)
Quarter: 2020Q1

REPORT INFORMATION
  Report Type: Report from Study
  Country: None (occurrence: US)
  Receive Date: 20191105
  Receipt Date: 20200122
  Transmission Date: 20200409
  Serious: Yes (Other)
  Sender: FDA-Public Use
  Company Number: US-ABBVIE-19K-163-2988202-00

PATIENT
  Age: 73 Year
  Sex: Female
  Weight: 81.72 kg

DRUGS (2)
  1. HUMIRA [Suspect]
     Active Substance: ADALIMUMAB
     Route: 058
     Dates: start: 201912
  2. HUMIRA [Suspect]
     Active Substance: ADALIMUMAB
     Indication: COLITIS ULCERATIVE
     Route: 058
     Dates: start: 201805, end: 201912

REACTIONS (10)
  - Cardiac disorder [Unknown]
  - Product administration error [Unknown]
  - Liquid product physical issue [Unknown]
  - Venous occlusion [Unknown]
  - Incorrect dose administered [Unknown]
  - Device issue [Unknown]
  - Fall [Recovering/Resolving]
  - Confusional state [Unknown]
  - Cataract [Recovering/Resolving]
  - Parkinson^s disease [Not Recovered/Not Resolved]

NARRATIVE: CASE EVENT DATE: 201906
